FAERS Safety Report 6658134-7 (Version None)
Quarter: 2010Q1

REPORT INFORMATION
  Report Type: 
  Country: None (occurrence: None)
  Receive Date: 20100330
  Receipt Date: 20100325
  Transmission Date: 20100710
  Serious: Yes (Hospitalization)
  Sender: FDA-Public Use
  Company Number: A0774924A

PATIENT
  Age: 69 Year
  Sex: Male
  Weight: 95.5 kg

DRUGS (11)
  1. AVANDIA [Suspect]
     Dosage: 4MG TWICE PER DAY
     Route: 048
     Dates: end: 20050301
  2. METOPROLOL TARTRATE [Concomitant]
     Dates: end: 20050301
  3. ALTACE [Concomitant]
  4. VYTORIN [Concomitant]
  5. COREG [Concomitant]
  6. LANTUS [Concomitant]
  7. GLUCOTROL XL [Concomitant]
  8. LOPRESSOR [Concomitant]
  9. NORVASC [Concomitant]
  10. COZAAR [Concomitant]
  11. NEURONTIN [Concomitant]

REACTIONS (2)
  - CARDIAC FAILURE CONGESTIVE [None]
  - MYOCARDIAL INFARCTION [None]
